FAERS Safety Report 20103143 (Version 1)
Quarter: 2021Q4

REPORT INFORMATION
  Report Type: Other
  Country: US (occurrence: US)
  Receive Date: 20211123
  Receipt Date: 20211123
  Transmission Date: 20220303
  Serious: Yes (Other)
  Sender: FDA-Public Use
  Company Number: US-JUBILANT CADISTA PHARMACEUTICALS-2021JUB00408

PATIENT
  Age: 62 Year
  Sex: Male
  Weight: 104.31 kg

DRUGS (5)
  1. LOSARTAN POTASSIUM [Suspect]
     Active Substance: LOSARTAN POTASSIUM
     Indication: Hypertension
     Dosage: UNK UNK,
     Route: 048
  2. LOSARTAN POTASSIUM AND HYDROCHLOROTHIAZIDE [Suspect]
     Active Substance: HYDROCHLOROTHIAZIDE\LOSARTAN POTASSIUM
     Indication: Hypertension
     Dosage: 1 TABLETS, 1X/DAY
     Route: 048
     Dates: end: 202110
  3. WARFARIN [Concomitant]
     Active Substance: WARFARIN
  4. ALLOPURINOL [Concomitant]
     Active Substance: ALLOPURINOL
  5. ANOTHER UNSPECIFIED MEDICATION [Concomitant]

REACTIONS (2)
  - Prostate cancer [Not Recovered/Not Resolved]
  - Recalled product administered [Recovered/Resolved]

NARRATIVE: CASE EVENT DATE: 20211004
